FAERS Safety Report 24023700 (Version 5)
Quarter: 2024Q3

REPORT INFORMATION
  Report Type: Report from Study
  Country: AU (occurrence: AU)
  Receive Date: 20240627
  Receipt Date: 20240710
  Transmission Date: 20241017
  Serious: No
  Sender: ROCHE
  Company Number: AU-ROCHE-3164445

PATIENT
  Age: 41 Year
  Sex: Female
  Weight: 63.6 kg

DRUGS (15)
  1. ALECTINIB [Suspect]
     Active Substance: ALECTINIB
     Indication: Non-small cell lung cancer metastatic
     Route: 048
     Dates: start: 20220131
  2. NIZATIDINE [Concomitant]
     Active Substance: NIZATIDINE
     Indication: Gastrooesophageal reflux disease
     Route: 048
     Dates: start: 2021
  3. RIVAROXABAN [Concomitant]
     Active Substance: RIVAROXABAN
     Indication: Deep vein thrombosis
     Route: 048
     Dates: start: 20220203, end: 20230309
  4. RIVAROXABAN [Concomitant]
     Active Substance: RIVAROXABAN
     Indication: Thrombosis prophylaxis
     Route: 048
     Dates: start: 20220310
  5. MOVICOL [Concomitant]
     Active Substance: POLYETHYLENE GLYCOL 3350\POTASSIUM CHLORIDE\SODIUM BICARBONATE\SODIUM CHLORIDE
     Indication: Prophylaxis
     Dosage: OTHER DOSAGE FORM
     Route: 048
     Dates: start: 20220131, end: 20220407
  6. MOVICOL [Concomitant]
     Active Substance: POLYETHYLENE GLYCOL 3350\POTASSIUM CHLORIDE\SODIUM BICARBONATE\SODIUM CHLORIDE
     Dosage: OTHER DOSAGE FORM
     Route: 048
     Dates: start: 20220408
  7. DOXYCYCLINE [Concomitant]
     Active Substance: DOXYCYCLINE\DOXYCYCLINE HYCLATE
     Indication: Rash
     Route: 048
     Dates: start: 20221226, end: 20230113
  8. DOXYCYCLINE [Concomitant]
     Active Substance: DOXYCYCLINE\DOXYCYCLINE HYCLATE
     Indication: Rosacea
     Route: 048
     Dates: start: 20231016, end: 20231029
  9. DOXYCYCLINE [Concomitant]
     Active Substance: DOXYCYCLINE\DOXYCYCLINE HYCLATE
     Indication: Eye pain
     Route: 048
     Dates: start: 20231030
  10. CLINDAMYCIN [Concomitant]
     Active Substance: CLINDAMYCIN
     Route: 061
     Dates: start: 20220706, end: 20220817
  11. IVERMECTIN [Concomitant]
     Active Substance: IVERMECTIN
     Route: 061
     Dates: start: 20220823, end: 20221004
  12. METRONIDAZOLE [Concomitant]
     Active Substance: METRONIDAZOLE
     Route: 061
     Dates: start: 20221008
  13. ACETAMINOPHEN [Concomitant]
     Active Substance: ACETAMINOPHEN
     Indication: COVID-19
     Dosage: 1 TABLET
     Route: 048
     Dates: start: 20231113, end: 20231113
  14. PANADEINE [Concomitant]
     Dosage: 1 TABLET
     Route: 048
     Dates: start: 20231113, end: 20231113
  15. PANADOL [Concomitant]
     Active Substance: ACETAMINOPHEN
     Indication: COVID-19
     Dosage: 2 TABLET
     Route: 048
     Dates: start: 20231113, end: 20231113

REACTIONS (4)
  - Fatigue [Not Recovered/Not Resolved]
  - Dysphonia [Not Recovered/Not Resolved]
  - Myalgia [Not Recovered/Not Resolved]
  - Constipation [Not Recovered/Not Resolved]

NARRATIVE: CASE EVENT DATE: 20220408
